FAERS Safety Report 7423382-5 (Version None)
Quarter: 2011Q2

REPORT INFORMATION
  Report Type: 
  Country: None (occurrence: None)
  Receive Date: 20110413
  Receipt Date: 20110413
  Transmission Date: 20111010
  Serious: Yes (Hospitalization)
  Sender: FDA-Public Use
  Company Number: None

PATIENT
  Age: 92 Year
  Sex: Male
  Weight: 66.5 kg

DRUGS (1)
  1. WARFARIN SODIUM [Suspect]
     Dosage: 2 MG EVERY DAY PO
     Route: 048
     Dates: start: 20100305, end: 20101212

REACTIONS (3)
  - INTERNATIONAL NORMALISED RATIO INCREASED [None]
  - HAEMORRHAGE [None]
  - BLOOD URINE PRESENT [None]
